FAERS Safety Report 12157398 (Version 1)
Quarter: 2016Q1

REPORT INFORMATION
  Report Type: Spontaneous
  Country: US (occurrence: US)
  Receive Date: 20160308
  Receipt Date: 20160308
  Transmission Date: 20160526
  Serious: Yes (Other)
  Sender: FDA-Public Use
  Company Number: US-PFIZER INC-2016127826

PATIENT
  Age: 45 Year
  Sex: Male
  Weight: 72.56 kg

DRUGS (15)
  1. LYRICA [Suspect]
     Active Substance: PREGABALIN
     Dosage: 50 MG, 2X/DAY (Q12)
     Route: 048
  2. TRAZODONE [Concomitant]
     Active Substance: TRAZODONE HYDROCHLORIDE
     Dosage: 25 MG, 1X/DAY
     Dates: start: 201508
  3. TRAMADOL. [Concomitant]
     Active Substance: TRAMADOL
     Dosage: 50 MG, 3X/DAY
     Dates: start: 201509
  4. CHLORPROMAZINE. [Concomitant]
     Active Substance: CHLORPROMAZINE
     Dosage: 25 MG, AS NEEDED
  5. VITAMIN D3 [Concomitant]
     Active Substance: CHOLECALCIFEROL
     Dosage: 3000 MG, 1X/DAY
  6. LYRICA [Suspect]
     Active Substance: PREGABALIN
     Dosage: 100 MG, 2X/DAY
     Route: 048
  7. BACLOFEN. [Concomitant]
     Active Substance: BACLOFEN
     Dosage: 15 MG, 4X/DAY
  8. VITAMIN B12 [Concomitant]
     Active Substance: CYANOCOBALAMIN
     Dosage: UNK, MONTHLY
  9. VITAMIN D [Concomitant]
     Active Substance: CHOLECALCIFEROL
     Dosage: 50000 MG, 2X/MONTH
  10. VALIUM [Concomitant]
     Active Substance: DIAZEPAM
     Dosage: 1 MG, 1X/DAY AT NIGHT
  11. IBUPROFEN. [Concomitant]
     Active Substance: IBUPROFEN
     Dosage: 400 MG, 3X/DAY OR NEEDED
  12. TECFIDERA [Concomitant]
     Active Substance: DIMETHYL FUMARATE
     Dosage: 240 MG, DAILY
  13. AMPYRA [Concomitant]
     Active Substance: DALFAMPRIDINE
     Dosage: 10 MG, 1X/DAY
     Dates: start: 201507
  14. FLOMAX [Concomitant]
     Active Substance: TAMSULOSIN HYDROCHLORIDE
     Dosage: 0.4 MG, 1X/DAY
     Dates: start: 201508
  15. TECFIDERA [Concomitant]
     Active Substance: DIMETHYL FUMARATE
     Dosage: ^120MG^

REACTIONS (4)
  - Cataract [Unknown]
  - Ankle fracture [Unknown]
  - Multiple sclerosis [Unknown]
  - Hernia [Unknown]

NARRATIVE: CASE EVENT DATE: 2006
